FAERS Safety Report 9788230 (Version 1)
Quarter: 2013Q4

REPORT INFORMATION
  Report Type: Spontaneous
  Country: US (occurrence: None)
  Receive Date: 20131227
  Receipt Date: 20131227
  Transmission Date: 20140711
  Serious: Yes (Hospitalization)
  Sender: FDA-Public Use
  Company Number: None

PATIENT
  Age: 84 Year
  Sex: Male
  Weight: 82.33 kg

DRUGS (6)
  1. COUMADIN [Suspect]
     Indication: CARDIAC VALVE DISEASE
     Dosage: MWF
     Route: 048
  2. OMEPRAZOLE [Concomitant]
  3. DONEPEZIL [Concomitant]
  4. NAMENDA [Concomitant]
  5. TIMOLOL [Concomitant]
  6. MVI [Concomitant]

REACTIONS (8)
  - Perirenal haematoma [None]
  - International normalised ratio increased [None]
  - Hypotension [None]
  - Respiratory distress [None]
  - Pneumonia [None]
  - Renal tubular necrosis [None]
  - Haemorrhage [None]
  - Blood creatinine increased [None]
